FAERS Safety Report 9753911 (Version 1)
Quarter: 2013Q4

REPORT INFORMATION
  Report Type: Spontaneous
  Country: US (occurrence: None)
  Receive Date: 20131211
  Receipt Date: 20131211
  Transmission Date: 20140711
  Serious: Yes (Hospitalization)
  Sender: FDA-Public Use
  Company Number: 2058220

PATIENT
  Age: 48 Year
  Sex: Male

DRUGS (2)
  1. PHENOBARBITAL [Suspect]
     Indication: CONVULSION
  2. ACETAMINOPHEN [Suspect]
     Indication: PAIN
     Route: 042

REACTIONS (3)
  - Intentional overdose [None]
  - Hepatotoxicity [None]
  - Drug interaction [None]
